FAERS Safety Report 9137480 (Version 1)
Quarter: 2013Q1

REPORT INFORMATION
  Report Type: Spontaneous
  Country: US (occurrence: US)
  Receive Date: 20130219
  Receipt Date: 20130219
  Transmission Date: 20140127
  Serious: No
  Sender: FDA-Public Use
  Company Number: US-BRISTOL-MYERS SQUIBB COMPANY-16830721

PATIENT
  Sex: Male
  Weight: 78 kg

DRUGS (12)
  1. ABATACEPT SUBQ INJECTION 125MG/ML [Suspect]
     Indication: RHEUMATOID ARTHRITIS
     Dosage: LAST DOSE: 23JUL2012?DURATION: OVER 3 MONTHS?ONGOING
     Route: 058
  2. NOVOLOG [Concomitant]
  3. LANTUS [Concomitant]
  4. ALENDRONATE [Concomitant]
  5. ASPIRIN [Concomitant]
  6. CARVEDILOL [Concomitant]
  7. FOLIC ACID [Concomitant]
  8. GLUCAGON [Concomitant]
  9. RESTORIL [Concomitant]
  10. LOVASTATIN [Concomitant]
  11. LUMIGAN [Concomitant]
  12. METHOTREXATE [Concomitant]

REACTIONS (1)
  - Drug dose omission [Unknown]
